FAERS Safety Report 20142099 (Version 2)
Quarter: 2021Q4

REPORT INFORMATION
  Report Type: Spontaneous
  Country: IT (occurrence: IT)
  Receive Date: 20211202
  Receipt Date: 20211230
  Transmission Date: 20220303
  Serious: Yes (Other)
  Sender: FDA-Public Use
  Company Number: None

PATIENT
  Age: 16 Year
  Sex: Female
  Weight: 62 kg

DRUGS (13)
  1. IVACAFTOR\TEZACAFTOR [Suspect]
     Active Substance: IVACAFTOR\TEZACAFTOR
     Indication: Cystic fibrosis
     Dosage: 1 TABLET, QD
     Route: 048
     Dates: start: 20200101
  2. KALYDECO [Suspect]
     Active Substance: IVACAFTOR
     Indication: Cystic fibrosis
     Dosage: 150 MG, QD
     Route: 048
     Dates: start: 20200101
  3. CIPROFLOXACIN [Concomitant]
     Active Substance: CIPROFLOXACIN
     Dosage: 1500 MILLIGRAM (TABLET) (IN CYCLES)
     Route: 048
  4. PULMOZYME [Concomitant]
     Active Substance: DORNASE ALFA
     Dosage: 1 DOSAGE FORM (2500 U/2.5 ML, SOLUTION FOR SPRAYER)
     Route: 055
  5. AMOXICILLIN\CLAVULANIC ACID [Concomitant]
     Active Substance: AMOXICILLIN\CLAVULANIC ACID
     Dosage: 2 GRAM (AUROBINDO 875MG/125MG, COATED TABLETS) (IN CYCLES)
  6. CLENIL [BECLOMETASONE DIPROPIONATE] [Concomitant]
     Dosage: 2 DOSAGE FORM (800 MICROGRAMS SUSPENSION FOR SPRAYER)
     Route: 055
  7. MOMETASONE ZENTIVA [Concomitant]
     Dosage: 50 MICROGRAMS/NASAL SPRAY DISPENSATION, SUSPENSION
     Route: 055
  8. AZITHROMYCIN [Concomitant]
     Active Substance: AZITHROMYCIN
     Dosage: 1 DOSAGE FORM (500 MG FILM-COATED TABLETS) (IN CYCLES)
     Route: 048
  9. IBUPROFEN [Concomitant]
     Active Substance: IBUPROFEN
     Dosage: 800 MILLIGRAM (TABLETS) (IN CYCLES)
  10. BACTRIM [Concomitant]
     Active Substance: SULFAMETHOXAZOLE\TRIMETHOPRIM
     Dosage: 2 DOSAGE FORM (160 MG + 800 MG TABLETS) (IN CYCLES)
     Route: 048
  11. BRONCOVALEAS [SALBUTAMOL SULFATE] [Concomitant]
     Dosage: 16 DROP (5 MG/ML SOLUTION FOR SPRAYER)
     Route: 055
  12. BRONCOVALEAS [SALBUTAMOL SULFATE] [Concomitant]
     Dosage: 4 DOSAGE FORM (100 MICROGRAMS/PRESSURIZED SPRAY SUSPENSION FOR NASAL IRRIGATION)
     Route: 055
  13. COLIREI [Concomitant]
     Dosage: 1 DOSAGE FORM (SATCHETS), QD

REACTIONS (3)
  - Amenorrhoea [Not Recovered/Not Resolved]
  - Ovarian cyst [Not Recovered/Not Resolved]
  - Pubic pain [Not Recovered/Not Resolved]

NARRATIVE: CASE EVENT DATE: 20210101
